FAERS Safety Report 9849069 (Version 1)
Quarter: 2013Q4

REPORT INFORMATION
  Report Type: Spontaneous
  Country: US (occurrence: None)
  Receive Date: 20131224
  Receipt Date: 20131224
  Transmission Date: 20140711
  Serious: Yes (Hospitalization)
  Sender: FDA-Public Use
  Company Number: PHEH2013US005177

PATIENT
  Age: 36 Year
  Sex: Female

DRUGS (8)
  1. MYFORTIC (MYCOPHENOLIC ACID) UNKNOWN [Suspect]
  2. INSULIN (INSULIN) [Concomitant]
  3. TACROLIMUS (TACROLIMUS) [Concomitant]
  4. BACTRIM (SULFAMETHOXAZOLE, TRIMETHOPRIM) [Concomitant]
  5. VALCYTE (VALGANCICLOVIR HYDROCHLORIDE)? [Concomitant]
  6. PREDNISONE (PREDNISONE) [Concomitant]
  7. FOLIC ACID (FOLIC ACID) [Concomitant]
  8. NITREX (ISOSORBIDE MONONITRATE) [Concomitant]

REACTIONS (1)
  - Renal and pancreas transplant rejection [None]
